FAERS Safety Report 5679750-5 (Version None)
Quarter: 2008Q1

REPORT INFORMATION
  Report Type: 
  Country: None (occurrence: None)
  Receive Date: 20080321
  Receipt Date: 20080310
  Transmission Date: 20080703
  Serious: Yes (Hospitalization)
  Sender: FDA-Public Use
  Company Number: GXKR2008SI02522

PATIENT
  Sex: Male

DRUGS (1)
  1. LEKADOL (NGX)(PARACETAMOL) TABLET [Suspect]
     Indication: PYREXIA
     Dosage: 1 OR MAYBE 2 TABLETS, ORAL
     Route: 048

REACTIONS (2)
  - DYSPNOEA [None]
  - ERYTHEMA [None]
